FAERS Safety Report 11713575 (Version 1)
Quarter: 2015Q4

REPORT INFORMATION
  Report Type: Spontaneous
  Country: US (occurrence: US)
  Receive Date: 20151109
  Receipt Date: 20151109
  Transmission Date: 20160304
  Serious: Yes (Other)
  Sender: FDA-Public Use
  Company Number: US-BEH-2015055355

PATIENT
  Sex: Female
  Weight: 85 kg

DRUGS (24)
  1. HIZENTRA [Suspect]
     Active Substance: HUMAN IMMUNOGLOBULIN G
     Dosage: FIRST SHIPPED 20-JAN-2011
  2. COLACE-T [Concomitant]
  3. LIPITOR [Concomitant]
     Active Substance: ATORVASTATIN CALCIUM
  4. HIZENTRA [Suspect]
     Active Substance: HUMAN IMMUNOGLOBULIN G
     Route: 058
  5. PREDNISONE. [Concomitant]
     Active Substance: PREDNISONE
  6. METOPROLOL SUCCINATE ER [Concomitant]
     Active Substance: METOPROLOL SUCCINATE
  7. PLAVIX [Concomitant]
     Active Substance: CLOPIDOGREL BISULFATE
  8. LYRICA [Concomitant]
     Active Substance: PREGABALIN
  9. HYDRALAZINE [Concomitant]
     Active Substance: HYDRALAZINE HYDROCHLORIDE
  10. OCUVITE [Concomitant]
     Active Substance: VITAMINS
  11. HIZENTRA [Suspect]
     Active Substance: HUMAN IMMUNOGLOBULIN G
     Indication: IMMUNODEFICIENCY COMMON VARIABLE
     Dosage: ??-JAN-2011
     Route: 058
  12. ACTONEL [Concomitant]
     Active Substance: RISEDRONATE SODIUM
  13. DIPHENHYDRAMINE. [Concomitant]
     Active Substance: DIPHENHYDRAMINE
  14. EPINEPHRINE. [Concomitant]
     Active Substance: EPINEPHRINE
  15. PROTONIX [Concomitant]
     Active Substance: PANTOPRAZOLE SODIUM
  16. POTASSIUM CHLORIDE. [Concomitant]
     Active Substance: POTASSIUM CHLORIDE
  17. BUMETANIDE. [Concomitant]
     Active Substance: BUMETANIDE
  18. LMX [Concomitant]
     Active Substance: LIDOCAINE
  19. ALBUTEROL. [Concomitant]
     Active Substance: ALBUTEROL
  20. MAVIK [Concomitant]
     Active Substance: TRANDOLAPRIL
  21. CALCIUM WITH D [Concomitant]
     Active Substance: CALCIUM\VITAMIN D
  22. ASPIRIN. [Concomitant]
     Active Substance: ASPIRIN
  23. MULTIVITAMIN [Concomitant]
     Active Substance: VITAMINS
  24. HYDROCODONE BITARTRATE AND ACETAMINOPHEN [Concomitant]
     Active Substance: ACETAMINOPHEN\HYDROCODONE BITARTRATE

REACTIONS (1)
  - Cardiac disorder [Unknown]
